FAERS Safety Report 7709396-6 (Version None)
Quarter: 2011Q3

REPORT INFORMATION
  Report Type: 
  Country: None (occurrence: None)
  Receive Date: 20110819
  Receipt Date: 20110809
  Transmission Date: 20111222
  Serious: Yes (Life-Threatening)
  Sender: FDA-Public Use
  Company Number: DSA_43952_2010

PATIENT
  Age: 30 Year
  Sex: Female

DRUGS (2)
  1. DILTIAZEM HCL [Suspect]
     Indication: SUICIDE ATTEMPT
     Dosage: (100 MG, NOTE THE PRESCRIBED AMOUNT, 1X ORAL)
     Route: 048
  2. NICORANDIL [Concomitant]

REACTIONS (13)
  - MALAISE [None]
  - RENAL FAILURE [None]
  - TOXICITY TO VARIOUS AGENTS [None]
  - ALTERED STATE OF CONSCIOUSNESS [None]
  - MULTIPLE DRUG OVERDOSE INTENTIONAL [None]
  - SUICIDE ATTEMPT [None]
  - SHOCK [None]
  - BLOOD POTASSIUM DECREASED [None]
  - ELECTROCARDIOGRAM QRS COMPLEX PROLONGED [None]
  - CONDUCTION DISORDER [None]
  - ATRIOVENTRICULAR DISSOCIATION [None]
  - DRUG SCREEN POSITIVE [None]
  - SINUS ARREST [None]
